FAERS Safety Report 16962798 (Version 5)
Quarter: 2020Q2

REPORT INFORMATION
  Report Type: Spontaneous
  Country: US (occurrence: US)
  Receive Date: 20191025
  Receipt Date: 20200501
  Transmission Date: 20200713
  Serious: Yes (Hospitalization)
  Sender: FDA-Public Use
  Company Number: US-ACTELION-A-US2019-197391

PATIENT
  Age: 67 Year
  Sex: Female
  Weight: 45.81 kg

DRUGS (3)
  1. ELIQUIS [Concomitant]
     Active Substance: APIXABAN
  2. TYVASO [Suspect]
     Active Substance: TREPROSTINIL
     Indication: PRODUCT USED FOR UNKNOWN INDICATION
     Dosage: UNK
     Route: 065
  3. OPSUMIT [Suspect]
     Active Substance: MACITENTAN
     Indication: PULMONARY HYPERTENSION
     Dosage: 10 MG, QD
     Route: 048

REACTIONS (6)
  - Dizziness [Unknown]
  - Hospitalisation [Unknown]
  - Chest discomfort [Unknown]
  - Headache [Unknown]
  - Malaise [Unknown]
  - Flushing [Unknown]

NARRATIVE: CASE EVENT DATE: 20191014
